FAERS Safety Report 5762708-5 (Version None)
Quarter: 2008Q2

REPORT INFORMATION
  Report Type: 
  Country: None (occurrence: None)
  Receive Date: 20080609
  Receipt Date: 20080602
  Transmission Date: 20081010
  Serious: Yes (Hospitalization)
  Sender: FDA-Public Use
  Company Number: US-MERCK-0805USA01377

PATIENT
  Age: 71 Year
  Sex: Male

DRUGS (13)
  1. ZOCOR [Suspect]
     Indication: BLOOD CHOLESTEROL
     Route: 048
     Dates: start: 20030101, end: 20080414
  2. GABAPENTIN [Concomitant]
     Route: 065
  3. FELODIPINE [Concomitant]
     Route: 065
  4. PAROXETINE [Concomitant]
     Route: 065
  5. IBUPROFEN [Concomitant]
     Route: 065
  6. GLIPIZIDE [Concomitant]
     Route: 065
  7. OXYCONTIN [Concomitant]
     Route: 065
  8. PRINIVIL [Concomitant]
     Route: 065
  9. AMLODIPINE BESYLATE [Concomitant]
     Route: 065
  10. FUROSEMIDE [Concomitant]
     Route: 065
  11. METOPROLOL [Concomitant]
     Route: 065
  12. PANTOPRAZOLE [Concomitant]
     Route: 065
  13. PLAVIX [Concomitant]
     Route: 065

REACTIONS (8)
  - ABDOMINAL PAIN UPPER [None]
  - CARDIAC ARREST [None]
  - CARDIAC DISORDER [None]
  - CHOLECYSTITIS [None]
  - COLITIS ISCHAEMIC [None]
  - CONFUSIONAL STATE [None]
  - NERVOUS SYSTEM DISORDER [None]
  - RHABDOMYOLYSIS [None]
